FAERS Safety Report 5460561-0 (Version None)
Quarter: 2007Q3

REPORT INFORMATION
  Report Type: 
  Country: None (occurrence: None)
  Receive Date: 20070919
  Receipt Date: 20070907
  Transmission Date: 20080115
  Serious: Yes (Other)
  Sender: FDA-Public Use
  Company Number: ES-PFIZER INC-2007051804

PATIENT
  Age: 70 Year
  Sex: Male

DRUGS (2)
  1. LYRICA [Suspect]
     Indication: NEURALGIA
     Route: 048
     Dates: start: 20070501, end: 20070601
  2. SEREPROSTAT [Concomitant]
     Indication: PROSTATIC DISORDER

REACTIONS (4)
  - ACCIDENTAL EXPOSURE [None]
  - INSOMNIA [None]
  - RENAL PAIN [None]
  - STOMACH DISCOMFORT [None]
